FAERS Safety Report 19919733 (Version 1)
Quarter: 2021Q4

REPORT INFORMATION
  Report Type: Spontaneous
  Country: US (occurrence: US)
  Receive Date: 20211005
  Receipt Date: 20211005
  Transmission Date: 20220303
  Serious: No
  Sender: FDA-Public Use
  Company Number: US-PFIZER INC-202101177858

PATIENT
  Age: 51 Year
  Sex: Female

DRUGS (1)
  1. GENOTROPIN [Suspect]
     Active Substance: SOMATROPIN
     Indication: Hypothalamo-pituitary disorder
     Dosage: 1 MG, ALTERNATE DAY (EVERY OTHER DAY)

REACTIONS (4)
  - Asthenia [Unknown]
  - Visual impairment [Unknown]
  - Product dose omission issue [Unknown]
  - Off label use [Unknown]
